FAERS Safety Report 12399073 (Version 1)
Quarter: 2016Q2

REPORT INFORMATION
  Report Type: Spontaneous
  Country: IE (occurrence: IE)
  Receive Date: 20160524
  Receipt Date: 20160524
  Transmission Date: 20160815
  Serious: Yes (Other)
  Sender: FDA-Public Use
  Company Number: IE-PFIZER INC-17601

PATIENT
  Age: 61 Year
  Sex: Male

DRUGS (16)
  1. FLAGYL [Concomitant]
     Active Substance: METRONIDAZOLE\METRONIDAZOLE HYDROCHLORIDE
     Dosage: FREQ: FREQ UNK
     Route: 065
  2. BISOPROLOL [Concomitant]
     Active Substance: BISOPROLOL
     Dosage: FREQ: FREQ UNK
     Route: 065
  3. INDAPAMIDE. [Concomitant]
     Active Substance: INDAPAMIDE
     Dosage: FREQ: FREQ UNK
     Route: 065
  4. INNOHEP [Suspect]
     Active Substance: TINZAPARIN SODIUM
     Indication: PROPHYLAXIS
     Dosage: FREQ: FREQ UNK
     Route: 065
     Dates: start: 20070622
  5. SEPTRIN [Suspect]
     Active Substance: SULFAMETHOXAZOLE\TRIMETHOPRIM
     Dosage: FREQ: UNK
     Route: 065
  6. VELOSEF [Suspect]
     Active Substance: CEPHRADINE
     Indication: PROPHYLAXIS
     Dosage: FREQ: FREQ UNK
     Route: 065
     Dates: start: 20070625, end: 20070626
  7. FUCIDIN [Concomitant]
     Active Substance: FUSIDIC ACID
     Dosage: FREQ: FREQ UNK
     Route: 065
  8. DIFENE [Suspect]
     Active Substance: DICLOFENAC SODIUM
     Indication: PROPHYLAXIS
     Dosage: FREQ: FREQ UNK
     Route: 065
  9. TARGOCID [Suspect]
     Active Substance: TEICOPLANIN
     Dosage: FREQ: UNK
     Route: 065
  10. VANCOMYCIN HCL [Suspect]
     Active Substance: VANCOMYCIN HYDROCHLORIDE
     Indication: PROPHYLAXIS
     Dosage: 1 G, FREQ: BID
     Route: 065
  11. ZYVOX [Suspect]
     Active Substance: LINEZOLID
     Dosage: FREQ: UNK
     Route: 065
  12. ZOTON [Suspect]
     Active Substance: LANSOPRAZOLE
     Indication: PROPHYLAXIS
     Dosage: 30 MG, ORO-DISPERSIBLE TABLETS, FREQ: FREQ UNK
     Route: 048
     Dates: start: 20070525, end: 20070709
  13. CLEXANE [Suspect]
     Active Substance: ENOXAPARIN SODIUM
     Indication: PROPHYLAXIS
     Dosage: FREQ: FREQ UNK
     Route: 042
  14. VALSARTAN. [Concomitant]
     Active Substance: VALSARTAN
     Dosage: FREQ: FREQ UNK
     Route: 065
  15. LOSEC [Suspect]
     Active Substance: OMEPRAZOLE
     Indication: PROPHYLAXIS
     Dosage: 40 MG, FREQ: FREQ UNK
     Route: 042
  16. ASPIRIN /00002701/ [Concomitant]
     Active Substance: ASPIRIN
     Dosage: FREQ: FREQ UNK
     Route: 065

REACTIONS (1)
  - Toxic epidermal necrolysis [Unknown]

NARRATIVE: CASE EVENT DATE: 20070618
